FAERS Safety Report 24744635 (Version 2)
Quarter: 2025Q1

REPORT INFORMATION
  Report Type: Spontaneous
  Country: SI (occurrence: SI)
  Receive Date: 20241217
  Receipt Date: 20250225
  Transmission Date: 20250409
  Serious: Yes (Hospitalization)
  Sender: NOVARTIS
  Company Number: SI-002147023-NVSC2024SI239258

PATIENT
  Age: 40 Year
  Sex: Female

DRUGS (1)
  1. OFATUMUMAB [Suspect]
     Active Substance: OFATUMUMAB
     Indication: Relapsing-remitting multiple sclerosis
     Dosage: QMO (ADMINISTERED TO HER THIGHS)
     Route: 058

REACTIONS (5)
  - Genital abscess [Recovered/Resolved]
  - Pyrexia [Recovered/Resolved]
  - Genital pain [Recovered/Resolved]
  - Fournier^s gangrene [Recovered/Resolved]
  - Sepsis [Recovered/Resolved]
